FAERS Safety Report 14029801 (Version 8)
Quarter: 2019Q1

REPORT INFORMATION
  Report Type: Report from Study
  Country: None (occurrence: GB)
  Receive Date: 20171002
  Receipt Date: 20190308
  Transmission Date: 20190417
  Serious: Yes (Hospitalization, Other)
  Sender: FDA-Public Use
  Company Number: GB-ABBVIE-17P-167-2114556-00

PATIENT
  Age: 51 Year
  Sex: Male
  Weight: 69 kg

DRUGS (10)
  1. HUMIRA [Suspect]
     Active Substance: ADALIMUMAB
     Indication: COLITIS ULCERATIVE
     Route: 058
     Dates: start: 20080825, end: 20080825
  2. HUMIRA [Suspect]
     Active Substance: ADALIMUMAB
     Route: 058
     Dates: start: 20161208
  3. CALCIUM CARBONATE AND CALECALCIFEROL [Concomitant]
     Indication: BLOOD CALCIUM
  4. CALCIUM CARBONATE AND CALECALCIFEROL [Concomitant]
     Indication: OSTEOPOROSIS
     Dosage: 2.5/22 MG/MCG
     Route: 048
     Dates: start: 20160816
  5. CALCIUM CARBONATE AND CALECALCIFEROL [Concomitant]
     Indication: VITAMIN SUPPLEMENTATION
  6. AZATHIOPRINE. [Suspect]
     Active Substance: AZATHIOPRINE
     Indication: COLITIS ULCERATIVE
     Route: 065
     Dates: start: 20110825
  7. SILDENAFIL CITRATE. [Concomitant]
     Active Substance: SILDENAFIL CITRATE
     Indication: LIBIDO DECREASED
     Route: 048
     Dates: start: 20160115
  8. ASACOL [Concomitant]
     Active Substance: MESALAMINE
     Indication: COLITIS ULCERATIVE
     Route: 048
     Dates: start: 20110919
  9. AZATHIOPRINE. [Suspect]
     Active Substance: AZATHIOPRINE
     Route: 065
     Dates: start: 20161208, end: 20170102
  10. CALCIUM CARBONATE AND CALECALCIFEROL [Concomitant]
     Indication: STEROID THERAPY

REACTIONS (2)
  - Colitis ulcerative [Recovered/Resolved]
  - Abdominal abscess [Recovered/Resolved]

NARRATIVE: CASE EVENT DATE: 20170813
